FAERS Safety Report 6246127-3 (Version None)
Quarter: 2009Q2

REPORT INFORMATION
  Report Type: 
  Country: None (occurrence: None)
  Receive Date: 20090626
  Receipt Date: 20090325
  Transmission Date: 20091009
  Serious: No
  Sender: FDA-Public Use
  Company Number: A0775333A

PATIENT
  Sex: Female

DRUGS (6)
  1. IMITREX [Suspect]
     Indication: MIGRAINE
     Dosage: 50MG AS REQUIRED
     Route: 048
     Dates: start: 20060101
  2. SUMATRIPTAN SUCCINATE [Suspect]
     Indication: MIGRAINE
     Route: 048
  3. BUTALBITAL [Concomitant]
  4. PROTONIX [Concomitant]
  5. SYNTHROID [Concomitant]
  6. ZETIA [Concomitant]

REACTIONS (4)
  - ARTHRALGIA [None]
  - CHEST DISCOMFORT [None]
  - DRUG INEFFECTIVE [None]
  - MUSCLE TIGHTNESS [None]
